FAERS Safety Report 21075637 (Version 1)
Quarter: 2022Q3

REPORT INFORMATION
  Report Type: Spontaneous
  Country: US (occurrence: None)
  Receive Date: 20220712
  Receipt Date: 20220712
  Transmission Date: 20221026
  Serious: Yes (Life-Threatening, Hospitalization)
  Sender: FDA-Public Use
  Company Number: None

PATIENT
  Age: 72 Year
  Sex: Male

DRUGS (1)
  1. DABIGATRAN [Suspect]
     Active Substance: DABIGATRAN

REACTIONS (4)
  - Confusional state [None]
  - Aphasia [None]
  - Subdural haematoma [None]
  - Aphasia [None]

NARRATIVE: CASE EVENT DATE: 20211019
